FAERS Safety Report 8427775-9 (Version None)
Quarter: 2012Q2

REPORT INFORMATION
  Report Type: 
  Country: None (occurrence: None)
  Receive Date: 20120611
  Receipt Date: 20120601
  Transmission Date: 20120825
  Serious: Yes (Hospitalization)
  Sender: FDA-Public Use
  Company Number: KR-BAXTER-2012BAX007329

PATIENT
  Sex: Female
  Weight: 67 kg

DRUGS (6)
  1. CARDURA [Concomitant]
     Indication: HYPERTENSION
     Route: 048
     Dates: start: 20110821
  2. PHYSIONEAL 2.5% [Suspect]
     Indication: PERITONEAL DIALYSIS
     Route: 033
  3. EXTRANEAL [Suspect]
     Indication: PERITONEAL DIALYSIS
     Route: 033
  4. PHYSIONEAL 4.25% [Suspect]
     Indication: PERITONEAL DIALYSIS
     Route: 033
  5. FEROBA [Concomitant]
     Dosage: 1T
     Route: 048
     Dates: start: 20110821
  6. CARVEDILOL [Concomitant]
     Indication: HYPERTENSION
     Route: 048
     Dates: start: 20110821

REACTIONS (1)
  - MYOCARDIAL INFARCTION [None]
